FAERS Safety Report 5015417-4 (Version None)
Quarter: 2006Q2

REPORT INFORMATION
  Report Type: 
  Country: None (occurrence: None)
  Receive Date: 20060601
  Receipt Date: 20060523
  Transmission Date: 20061013
  Serious: Yes (Other)
  Sender: FDA-Public Use
  Company Number: PHBS2006BR07669

PATIENT
  Age: 9 Year
  Sex: Female
  Weight: 43.3 kg

DRUGS (5)
  1. RITALIN [Suspect]
     Dosage: 30 MG/D
     Route: 048
  2. DEPAKOTE [Concomitant]
     Dosage: 375 MG/D
     Route: 048
     Dates: start: 20020101
  3. FORMOTEROL W/BUDESONIDE [Concomitant]
  4. FLIXONASE [Concomitant]
  5. HOMEOPATHIC PREPARATIONS [Concomitant]

REACTIONS (4)
  - ASTHMA [None]
  - BRONCHITIS [None]
  - FATIGUE [None]
  - PNEUMONIA [None]
